FAERS Safety Report 6297709-4 (Version None)
Quarter: 2009Q3

REPORT INFORMATION
  Report Type: 
  Country: None (occurrence: None)
  Receive Date: 20090805
  Receipt Date: 20090727
  Transmission Date: 20100115
  Serious: Yes (Other)
  Sender: FDA-Public Use
  Company Number: US-MYLANLABS-2009S1010300

PATIENT
  Age: 31 Year
  Sex: Male
  Weight: 78.4 kg

DRUGS (1)
  1. PHENYTOIN SODIUM [Suspect]
     Indication: EPILEPSY
     Route: 048
     Dates: start: 20090324, end: 20090408

REACTIONS (5)
  - AGGRESSION [None]
  - ANTICONVULSANT DRUG LEVEL DECREASED [None]
  - BARBITURATES POSITIVE [None]
  - HYPOXIA [None]
  - MENTAL STATUS CHANGES [None]
